FAERS Safety Report 4351846-X (Version None)
Quarter: 2004Q2

REPORT INFORMATION
  Report Type: 
  Country: None (occurrence: None)
  Receive Date: 20040429
  Receipt Date: 20040107
  Transmission Date: 20050107
  Serious: No
  Sender: FDA-Public Use
  Company Number: 2004-112126-NL

PATIENT
  Age: 21 Year
  Sex: Female
  Weight: 61 kg

DRUGS (7)
  1. NUVARING [Suspect]
     Indication: CONTRACEPTION
     Dosage: DF DAILY VAGINAL
     Route: 067
     Dates: start: 20031223
  2. NORFRAMIN [Concomitant]
  3. LAMICTAL [Concomitant]
  4. ZOLOFT [Concomitant]
  5. MYSOLINE [Concomitant]
  6. NEXIUM [Concomitant]
  7. CHLORDIAZEPOXIDE [Concomitant]

REACTIONS (2)
  - ABDOMINAL PAIN [None]
  - METRORRHAGIA [None]
